FAERS Safety Report 21753236 (Version 1)
Quarter: 2022Q4

REPORT INFORMATION
  Report Type: Spontaneous
  Country: US (occurrence: None)
  Receive Date: 20221219
  Receipt Date: 20221219
  Transmission Date: 20230113
  Serious: No
  Sender: FDA-Public Use
  Company Number: None

PATIENT
  Age: 62 Year
  Sex: Male
  Weight: 120.66 kg

DRUGS (1)
  1. ISAVUCONAZONIUM SULFATE [Suspect]
     Active Substance: ISAVUCONAZONIUM SULFATE
     Dosage: FREQUENCY : DAILY;?
     Route: 048
     Dates: start: 20221129, end: 20221213

REACTIONS (2)
  - Tardive dyskinesia [None]
  - Muscle twitching [None]

NARRATIVE: CASE EVENT DATE: 20221211
